FAERS Safety Report 16937282 (Version 3)
Quarter: 2020Q1

REPORT INFORMATION
  Report Type: Spontaneous
  Country: GB (occurrence: GB)
  Receive Date: 20191018
  Receipt Date: 20200225
  Transmission Date: 20200409
  Serious: Yes (Life-Threatening)
  Sender: FDA-Public Use
  Company Number: GB-MYLANLABS-2019M1098368

PATIENT
  Age: 69 Year
  Sex: Female
  Weight: 82.55 kg

DRUGS (1)
  1. ARIPIPRAZOLE. [Suspect]
     Active Substance: ARIPIPRAZOLE
     Indication: PRODUCT USED FOR UNKNOWN INDICATION
     Dosage: UNK
     Route: 048
     Dates: start: 201704

REACTIONS (3)
  - Peripheral swelling [Unknown]
  - Suicidal ideation [Recovering/Resolving]
  - Insomnia [Unknown]
